FAERS Safety Report 9855852 (Version 3)
Quarter: 2014Q1

REPORT INFORMATION
  Report Type: Spontaneous
  Country: IT (occurrence: IT)
  Receive Date: 20140130
  Receipt Date: 20140303
  Transmission Date: 20141002
  Serious: Yes (Hospitalization)
  Sender: FDA-Public Use
  Company Number: IT-SA-2014SA009687

PATIENT
  Age: 62 Year
  Sex: Male

DRUGS (6)
  1. ELOXATIN [Suspect]
     Indication: COLON CANCER
     Route: 042
     Dates: start: 20140109, end: 20140109
  2. CALCIUM LEVOFOLINATE [Suspect]
     Indication: COLON CANCER
     Dosage: 175MG
     Route: 042
     Dates: start: 20140109, end: 20140109
  3. ZOFRAN [Concomitant]
     Indication: PROPHYLAXIS
     Dosage: INJECTABLE SOLUTION
     Route: 042
  4. SODIUM CHLORIDE [Concomitant]
     Dosage: INJECTABLE SOLUTION
     Route: 042
  5. SOLDESAM [Concomitant]
     Indication: ALLERGY PROPHYLAXIS
     Dosage: INJECTABLE SOLUTION
     Route: 042
  6. RANIDIL [Concomitant]
     Indication: PROPHYLAXIS AGAINST GASTROINTESTINAL ULCER
     Dosage: INJECTABLE SOLUTION
     Route: 042

REACTIONS (2)
  - Loss of consciousness [Recovering/Resolving]
  - Head injury [Recovering/Resolving]
